FAERS Safety Report 9637603 (Version 2)
Quarter: 2013Q4

REPORT INFORMATION
  Report Type: Spontaneous
  Country: US (occurrence: None)
  Receive Date: 20131018
  Receipt Date: 20131118
  Transmission Date: 20140711
  Serious: Yes (Other)
  Sender: FDA-Public Use
  Company Number: 2013P1020204

PATIENT
  Age: 87 Year
  Sex: Female

DRUGS (7)
  1. CEFUROXIME [Suspect]
     Dates: start: 20110404
  2. ASA [Concomitant]
  3. CALCIUM [Concomitant]
  4. DUCOSATE SODIUM [Concomitant]
  5. LISINOPRIL [Concomitant]
  6. MULTIVITAMIN [Concomitant]
  7. PROVENTIL [Concomitant]

REACTIONS (3)
  - Eye infection [None]
  - Staphylococcal infection [None]
  - Endophthalmitis [None]
